FAERS Safety Report 6579346-7 (Version None)
Quarter: 2010Q1

REPORT INFORMATION
  Report Type: 
  Country: None (occurrence: None)
  Receive Date: 20100212
  Receipt Date: 20100203
  Transmission Date: 20100710
  Serious: Yes (Other)
  Sender: FDA-Public Use
  Company Number: CA-JNJFOC-20090704559

PATIENT
  Sex: Female
  Weight: 89.81 kg

DRUGS (2)
  1. REMICADE [Suspect]
     Indication: CROHN'S DISEASE
     Route: 042
  2. PURINETHOL [Concomitant]

REACTIONS (4)
  - FEEDING DISORDER [None]
  - MYALGIA [None]
  - NAUSEA [None]
  - VOMITING [None]
